FAERS Safety Report 7717039-0 (Version None)
Quarter: 2011Q3

REPORT INFORMATION
  Report Type: 
  Country: None (occurrence: None)
  Receive Date: 20110829
  Receipt Date: 20110815
  Transmission Date: 20111222
  Serious: Yes (Other)
  Sender: FDA-Public Use
  Company Number: US-UCBSA-039210

PATIENT
  Age: 23 Year
  Sex: Female
  Weight: 113 kg

DRUGS (31)
  1. LYRICA [Concomitant]
     Indication: MUSCLE TIGHTNESS
     Dosage: TOTAL DAILY DOSE: 100MG
     Route: 048
     Dates: start: 20090101
  2. KLONOPIN [Concomitant]
     Indication: AKATHISIA
     Dosage: TOTAL DAILY DOSE: 2MG
     Route: 048
     Dates: start: 19980302
  3. CARBATROL [Concomitant]
     Indication: EPILEPSY
     Dosage: TOTAL DAILY DOSE: 600 MG
     Route: 048
     Dates: start: 20100820
  4. VIMPAT [Suspect]
     Dosage: 150MG
     Dates: start: 20100729, end: 20100902
  5. SINGULAIR [Concomitant]
     Indication: ASTHMA
     Dosage: TOTAL DAILY DOSE:10MG
     Route: 048
     Dates: start: 20040101
  6. KLONOPIN [Concomitant]
     Indication: ANXIETY
     Dosage: TOTAL DAILY DOSE: 2MG
     Route: 048
     Dates: start: 19980302
  7. SEROQUEL [Concomitant]
     Indication: AFFECTIVE DISORDER
     Dosage: TOTAL DAILY DOSE: 400MG
     Route: 048
     Dates: start: 20100601
  8. BYSTOLIC [Concomitant]
     Indication: PALPITATIONS
     Dosage: 5 MG DAILY
     Route: 048
     Dates: start: 20100922
  9. VIMPAT [Suspect]
     Indication: CONVULSION
     Dosage: 25/JUN/2010: 100 MG; 200MG DAILY
     Dates: start: 20100701, end: 20100729
  10. KLONOPIN [Concomitant]
     Indication: POST-TRAUMATIC STRESS DISORDER
     Dosage: TOTAL DAILY DOSE: 2MG
     Route: 048
     Dates: start: 19980302
  11. KLONOPIN [Concomitant]
     Indication: PANIC DISORDER
     Dosage: TOTAL DAILY DOSE: 2MG
     Route: 048
     Dates: start: 19980302
  12. SEROQUEL [Concomitant]
     Indication: BIPOLAR I DISORDER
     Dosage: TOTAL DAILY DOSE: 400MG
     Route: 048
     Dates: start: 20100601
  13. ALBUTEROL SULFATE AUTOHALER [Concomitant]
     Indication: ASTHMA
     Dosage: 90MCG/INH AS NEEDED, INHALER
     Dates: start: 19861001
  14. MINIPRESS [Concomitant]
     Indication: NIGHTMARE
     Dosage: TOTAL DAILY DOSE: 12MG
     Dates: start: 20010903
  15. LYRICA [Concomitant]
     Indication: FIBROMYALGIA
     Dosage: TOTAL DAILY DOSE: 100MG
     Route: 048
     Dates: start: 20090101
  16. DEPAKOTE ER [Concomitant]
     Indication: CONVULSION
     Dosage: TOTAL DAILY DOSE:2000MG
     Route: 048
     Dates: start: 20100805
  17. DEPAKOTE ER [Concomitant]
     Indication: BIPOLAR DISORDER
     Dosage: TOTAL DAILY DOSE:2000MG
     Route: 048
     Dates: start: 20100805
  18. CARBATROL [Concomitant]
     Indication: CONVULSION
     Dosage: TOTAL DAILY DOSE: 600 MG
     Route: 048
     Dates: start: 20100820
  19. COLACE [Concomitant]
     Indication: CONSTIPATION
     Dosage: 150 MG DAILY
     Route: 048
     Dates: start: 20101130
  20. BYSTOLIC [Concomitant]
     Indication: HYPERTENSION
     Dosage: 5 MG DAILY
     Route: 048
     Dates: start: 20100922
  21. BYSTOLIC [Concomitant]
     Dosage: 5 MG DAILY
     Route: 048
     Dates: start: 20100922
  22. SYNTHROID [Concomitant]
     Indication: HYPOTHYROIDISM
     Dosage: TOTAL DAILY DOSE:100 MCG
     Route: 048
     Dates: start: 20090601
  23. ADVAIR DISKUS 100/50 [Concomitant]
     Indication: ASTHMA
     Dosage: TOTAL DAILY DOSE:2 X 250 MCG-50 MCG DAILY (INHALATION)
     Dates: start: 20040101
  24. CARBATROL [Concomitant]
     Indication: BIPOLAR DISORDER
     Dosage: TOTAL DAILY DOSE: 600 MG
     Route: 048
     Dates: start: 20100820
  25. VISTARIL [Concomitant]
     Indication: ANXIETY
     Dosage: 100 MG AS NEEDED
     Dates: start: 20100401, end: 20110228
  26. COLACE [Concomitant]
     Indication: HAEMORRHOIDS
     Dosage: 150 MG DAILY
     Route: 048
     Dates: start: 20101130
  27. SINGULAIR [Concomitant]
     Indication: ORAL ALLERGY SYNDROME
     Dosage: TOTAL DAILY DOSE:10MG
     Route: 048
     Dates: start: 20040101
  28. PRILOSEC [Concomitant]
     Indication: GASTROOESOPHAGEAL REFLUX DISEASE
     Dosage: 20MG AS NEEDED
     Dates: start: 20040101
  29. TRAZODONE HYDROCHLORIDE [Concomitant]
     Indication: INSOMNIA
     Dosage: TOTAL DAILY DOSE: 200 MG
     Dates: start: 20010403
  30. KLONOPIN [Concomitant]
     Indication: CONVULSION
     Dosage: TOTAL DAILY DOSE: 2MG
     Route: 048
     Dates: start: 19980302
  31. SEROQUEL [Concomitant]
     Indication: INSOMNIA
     Dosage: TOTAL DAILY DOSE: 400MG
     Route: 048
     Dates: start: 20100601

REACTIONS (3)
  - HYPERTENSION [None]
  - VERTIGO [None]
  - SINUS TACHYCARDIA [None]
